FAERS Safety Report 19575767 (Version 1)
Quarter: 2021Q3

REPORT INFORMATION
  Report Type: Spontaneous
  Country: US (occurrence: US)
  Receive Date: 20210716
  Receipt Date: 20210716
  Transmission Date: 20211014
  Serious: No
  Sender: FDA-Public Use
  Company Number: None

PATIENT
  Age: 71 Year
  Sex: Male
  Weight: 101 kg

DRUGS (2)
  1. BACTRIM DS [Suspect]
     Active Substance: SULFAMETHOXAZOLE\TRIMETHOPRIM
     Indication: URINARY TRACT INFECTION
     Route: 048
     Dates: start: 20210715, end: 20210716
  2. SULFAMETHOXAZOLE?TRIMETHOPRIM (BACTRIM DS) 800?160 MG PER TABLET [Concomitant]

REACTIONS (3)
  - Oropharyngeal pain [None]
  - Lymphadenopathy [None]
  - Angioedema [None]

NARRATIVE: CASE EVENT DATE: 20210716
